FAERS Safety Report 9804729 (Version 1)
Quarter: 2014Q1

REPORT INFORMATION
  Report Type: Report from Study
  Country: US (occurrence: US)
  Receive Date: 20140108
  Receipt Date: 20140108
  Transmission Date: 20141002
  Serious: Yes (Hospitalization)
  Sender: FDA-Public Use
  Company Number: US-TAKEDA-2014TUS000044

PATIENT
  Age: 80 Year
  Sex: Female
  Weight: 79.1 kg

DRUGS (12)
  1. BLINDED PIOGLITAZONE HYDROCHLORIDE [Suspect]
     Dosage: UNK
     Dates: start: 20131210, end: 20131229
  2. BLINDED PLACEBO [Suspect]
     Dosage: UNK
     Dates: start: 20131210, end: 20131229
  3. BLINDED PIOGLITAZONE HYDROCHLORIDE [Suspect]
     Dosage: UNK
     Dates: start: 20140103
  4. BLINDED PLACEBO [Suspect]
     Dosage: UNK
     Dates: start: 20140103
  5. ACIPHEX [Concomitant]
     Indication: ULCER
     Dosage: 20 MG, QD
     Route: 048
     Dates: start: 201101
  6. PROPRANOLOL [Concomitant]
     Indication: TREMOR
     Dosage: 10 MG, QD
     Route: 048
     Dates: start: 201106
  7. ASPIRIN [Concomitant]
     Indication: PROPHYLAXIS
     Dosage: 81 MG, QD
     Route: 048
     Dates: start: 2007
  8. CALCIUM D3                         /01483701/ [Concomitant]
     Indication: NUTRITIONAL SUPPLEMENTATION
     Dosage: 500 MG, QD
     Route: 048
     Dates: start: 20130827, end: 20131209
  9. GLUCOSAMINE [Concomitant]
     Indication: SUPPLEMENTATION THERAPY
     Dosage: UNK
     Dates: start: 20130827
  10. MIDRIN                             /00450801/ [Concomitant]
     Indication: MIGRAINE
     Dosage: 325/65/100 MG, PRN
     Route: 048
     Dates: start: 20130416
  11. LORTAB                             /00607101/ [Concomitant]
     Indication: MUSCULOSKELETAL PAIN
     Dosage: 10 MG, PRN
     Route: 048
     Dates: start: 2013
  12. CALTRATE                           /00751519/ [Concomitant]
     Indication: SUPPLEMENTATION THERAPY
     Dosage: 2800 MG, QD
     Route: 048
     Dates: start: 20131210

REACTIONS (1)
  - Viral infection [Unknown]
